FAERS Safety Report 9233194 (Version 3)
Quarter: 2013Q2

REPORT INFORMATION
  Report Type: Spontaneous
  Country: BR (occurrence: BR)
  Receive Date: 20130416
  Receipt Date: 20130606
  Transmission Date: 20140414
  Serious: Yes (Other)
  Sender: FDA-Public Use
  Company Number: BR-AMGEN-BRASP2013025892

PATIENT
  Age: 30 Year
  Sex: Female
  Weight: 60 kg

DRUGS (5)
  1. ENBREL [Suspect]
     Indication: RHEUMATOID ARTHRITIS
     Dosage: 50 MG, ONCE WEEKLY
     Route: 058
     Dates: start: 201204
  2. ENBREL [Suspect]
     Dosage: 25 MG, QWK
  3. ARAVA [Concomitant]
     Indication: RHEUMATOID ARTHRITIS
     Dosage: 20 MG, 1X/DAY
     Dates: start: 2012
  4. PREDNISONE [Concomitant]
     Dosage: HALF TABLET, ALTERNATE DAY
     Dates: start: 2003
  5. CALCIUM [Concomitant]
     Dosage: 500 MG, 1X/DAY
     Dates: start: 201209

REACTIONS (8)
  - Eye pain [Unknown]
  - Pain [Unknown]
  - Decreased appetite [Unknown]
  - Chills [Unknown]
  - Headache [Unknown]
  - Malaise [Unknown]
  - Feeling abnormal [Recovering/Resolving]
  - Sinusitis [Recovering/Resolving]
